FAERS Safety Report 14297177 (Version 1)
Quarter: 2017Q4

REPORT INFORMATION
  Report Type: Other
  Country: US (occurrence: ES)
  Receive Date: 20171218
  Receipt Date: 20171218
  Transmission Date: 20180321
  Serious: Yes (Other)
  Sender: FDA-Public Use
  Company Number: ES-BRECKENRIDGE PHARMACEUTICAL, INC.-2037304

PATIENT
  Age: 54 Year
  Sex: Female

DRUGS (3)
  1. DOCETAXEL. [Concomitant]
     Active Substance: DOCETAXEL
     Route: 042
  2. TRASTUZUMAB. [Concomitant]
     Active Substance: TRASTUZUMAB
     Route: 042
  3. ZOLEDRONIC ACID [Suspect]
     Active Substance: ZOLEDRONIC ACID
     Indication: METASTASES TO BONE
     Route: 042

REACTIONS (2)
  - Tubulointerstitial nephritis [Recovered/Resolved]
  - Fanconi syndrome [Recovered/Resolved]
